FAERS Safety Report 10219562 (Version 1)
Quarter: 2014Q2

REPORT INFORMATION
  Report Type: Spontaneous
  Country: BR (occurrence: BR)
  Receive Date: 20140605
  Receipt Date: 20140605
  Transmission Date: 20141212
  Serious: Yes (Hospitalization)
  Sender: FDA-Public Use
  Company Number: BR-GLAXOSMITHKLINE-A1075788A

PATIENT
  Age: 86 Year
  Sex: Female
  Weight: 53 kg

DRUGS (4)
  1. SERETIDE [Suspect]
     Indication: RESPIRATORY DISORDER
     Dosage: 1PUFF TWICE PER DAY
     Route: 065
     Dates: start: 2008
  2. RIVOTRIL [Concomitant]
  3. SERTRALINE [Concomitant]
  4. UNSPECIFIED MEDICATION [Concomitant]

REACTIONS (3)
  - Fall [Recovered/Resolved]
  - Rib fracture [Recovered/Resolved]
  - Lung disorder [Recovered/Resolved]
